FAERS Safety Report 24695401 (Version 1)
Quarter: 2024Q4

REPORT INFORMATION
  Report Type: Spontaneous
  Country: MX (occurrence: MX)
  Receive Date: 20241204
  Receipt Date: 20241204
  Transmission Date: 20250114
  Serious: Yes (Death, Hospitalization, Other)
  Sender: GLAND PHARMA LTD
  Company Number: MX-GLANDPHARMA-MX-2024GLNLIT01156

PATIENT
  Age: 61 Year
  Sex: Male

DRUGS (2)
  1. DOXORUBICIN HYDROCHLORIDE [Suspect]
     Active Substance: DOXORUBICIN HYDROCHLORIDE
     Indication: Prostate sarcoma
     Route: 065
  2. ERTAPENEM [Concomitant]
     Active Substance: ERTAPENEM
     Indication: Antibiotic therapy
     Route: 065

REACTIONS (3)
  - Febrile neutropenia [Fatal]
  - Toxicity to various agents [Fatal]
  - Product use in unapproved indication [Unknown]
